FAERS Safety Report 24665689 (Version 1)
Quarter: 2024Q4

REPORT INFORMATION
  Report Type: Spontaneous
  Country: US (occurrence: US)
  Receive Date: 20241126
  Receipt Date: 20241126
  Transmission Date: 20250114
  Serious: No
  Sender: PFIZER
  Company Number: US-PFIZER INC-202400306626

PATIENT
  Age: 18 Year
  Sex: Female
  Weight: 51 kg

DRUGS (1)
  1. NURTEC ODT [Suspect]
     Active Substance: RIMEGEPANT SULFATE
     Indication: Migraine
     Dosage: 75 MG, DAILY

REACTIONS (8)
  - Chromaturia [Unknown]
  - Vomiting [Unknown]
  - Oropharyngeal pain [Unknown]
  - COVID-19 [Unknown]
  - Crystal urine present [Unknown]
  - White blood cells urine positive [Unknown]
  - Proteinuria [Unknown]
  - Off label use [Unknown]
